FAERS Safety Report 6099995-2 (Version None)
Quarter: 2009Q1

REPORT INFORMATION
  Report Type: 
  Country: None (occurrence: None)
  Receive Date: 20090303
  Receipt Date: 20090226
  Transmission Date: 20090719
  Serious: Yes (Death, Hospitalization)
  Sender: FDA-Public Use
  Company Number: A0770449A

PATIENT
  Age: 64 Year
  Sex: Female

DRUGS (2)
  1. ARIXTRA [Suspect]
     Indication: DEEP VEIN THROMBOSIS
     Dosage: 1INJ PER DAY
     Route: 058
     Dates: start: 20081101, end: 20090221
  2. UNKNOWN MEDICATION [Concomitant]

REACTIONS (1)
  - DEATH [None]
